FAERS Safety Report 18874880 (Version 1)
Quarter: 2021Q1

REPORT INFORMATION
  Report Type: Spontaneous
  Country: CN (occurrence: CN)
  Receive Date: 20210210
  Receipt Date: 20210210
  Transmission Date: 20210420
  Serious: Yes (Other)
  Sender: FDA-Public Use
  Company Number: CN-ASTRAZENECA-2021A034552

PATIENT
  Age: 60 Year
  Sex: Female

DRUGS (4)
  1. OSIMERTINIB. [Suspect]
     Active Substance: OSIMERTINIB
     Indication: LUNG ADENOCARCINOMA STAGE IV
     Route: 048
     Dates: start: 201801, end: 201812
  2. OSIMERTINIB. [Suspect]
     Active Substance: OSIMERTINIB
     Indication: LUNG ADENOCARCINOMA STAGE IV
     Route: 048
  3. CRIZOTINIB [Suspect]
     Active Substance: CRIZOTINIB
     Indication: LUNG ADENOCARCINOMA STAGE IV
     Route: 065
     Dates: start: 201801
  4. GEFITINIB. [Suspect]
     Active Substance: GEFITINIB
     Indication: LUNG ADENOCARCINOMA STAGE IV
     Route: 048

REACTIONS (8)
  - EGFR gene mutation [Unknown]
  - Rash [Unknown]
  - Drug resistance [Unknown]
  - Skin hyperpigmentation [Unknown]
  - Paronychia [Unknown]
  - Malignant neoplasm progression [Unknown]
  - Ejection fraction decreased [Unknown]
  - ALK gene rearrangement assay [Unknown]

NARRATIVE: CASE EVENT DATE: 201612
